FAERS Safety Report 8731650 (Version 2)
Quarter: 2012Q4

REPORT INFORMATION
  Report Type: 
  Country: FR (occurrence: FR)
  Receive Date: 20120820
  Receipt Date: 20121015
  Transmission Date: 20130627
  Serious: Yes (Life-Threatening, Hospitalization)
  Sender: FDA-Public Use
  Company Number: FR-ASTRAZENECA-2012SE57227

PATIENT
  Age: 86 Day
  Sex: Female

DRUGS (9)
  1. INEXIUM [Suspect]
     Route: 048
     Dates: start: 20120622, end: 20120802
  2. ALLOPURINOL [Suspect]
     Indication: GOUT
     Route: 048
     Dates: start: 20120712, end: 20120802
  3. CORENITEC [Concomitant]
  4. HYPERIUM [Concomitant]
  5. NATISPRAY [Concomitant]
  6. LASILIX [Concomitant]
  7. LEVOTHYROX [Concomitant]
  8. CARDENSIEL [Concomitant]
  9. KARDEGIC [Concomitant]

REACTIONS (1)
  - Bone marrow failure [Not Recovered/Not Resolved]
